FAERS Safety Report 4851821-2 (Version None)
Quarter: 2005Q4

REPORT INFORMATION
  Report Type: 
  Country: None (occurrence: None)
  Receive Date: 20051213
  Receipt Date: 20051130
  Transmission Date: 20060501
  Serious: Yes (Other)
  Sender: FDA-Public Use
  Company Number: 2005AC01912

PATIENT
  Age: 57 Year
  Sex: Female

DRUGS (6)
  1. GEFITINIB [Suspect]
     Indication: NON-SMALL CELL LUNG CANCER
     Route: 048
  2. GEFITINIB [Suspect]
     Route: 048
  3. CHLORPHENIRAMINE MALEATE [Suspect]
     Indication: PRURITUS
  4. FAMOTIDINE [Suspect]
     Indication: ABDOMINAL DISCOMFORT
  5. ATENOLOL [Concomitant]
  6. HYDROCHLOROTHIAZIDE [Concomitant]

REACTIONS (8)
  - DIARRHOEA [None]
  - DYSPEPSIA [None]
  - HEPATIC ENZYME INCREASED [None]
  - HEPATIC FIBROSIS [None]
  - HEPATIC NECROSIS [None]
  - HEPATITIS [None]
  - HEPATOCELLULAR DAMAGE [None]
  - RASH PRURITIC [None]
